FAERS Safety Report 13422779 (Version 1)
Quarter: 2017Q2

REPORT INFORMATION
  Report Type: Spontaneous
  Country: US (occurrence: US)
  Receive Date: 20170408
  Receipt Date: 20170408
  Transmission Date: 20170830
  Serious: No
  Sender: FDA-Public Use
  Company Number: None

PATIENT
  Age: 76 Year
  Sex: Male

DRUGS (2)
  1. ENTECAVIR TAB 1MG [Suspect]
     Active Substance: ENTECAVIR
     Indication: CHRONIC HEPATITIS B
  2. ENTECAVIR TAB 1MG [Suspect]
     Active Substance: ENTECAVIR
     Indication: ESSENTIAL HYPERTENSION

REACTIONS (1)
  - Rash [None]

NARRATIVE: CASE EVENT DATE: 20170408
